FAERS Safety Report 23987107 (Version 1)
Quarter: 2024Q2

REPORT INFORMATION
  Report Type: Report from Study
  Country: BE (occurrence: BE)
  Receive Date: 20240618
  Receipt Date: 20240618
  Transmission Date: 20240715
  Serious: Yes (Hospitalization)
  Sender: FDA-Public Use
  Company Number: BE-ABBVIE-5731911

PATIENT
  Sex: Male
  Weight: 78 kg

DRUGS (9)
  1. CARBIDOPA\LEVODOPA [Suspect]
     Active Substance: CARBIDOPA\LEVODOPA
     Indication: Parkinson^s disease
     Dosage: MD: 5.2ML, CD: 2.8ML/H, ED: 1.50ML DURING 16 HOURS
     Route: 050
     Dates: start: 20220916, end: 20230309
  2. CARBIDOPA\LEVODOPA [Suspect]
     Active Substance: CARBIDOPA\LEVODOPA
     Dosage: MD: 5.2ML, CD: 2.8ML/H, ED: 1.50ML DURING 16 HOURS
     Route: 050
     Dates: start: 20230309, end: 20240424
  3. CARBIDOPA\LEVODOPA [Suspect]
     Active Substance: CARBIDOPA\LEVODOPA
     Route: 050
     Dates: start: 20190226
  4. CARBIDOPA\LEVODOPA [Suspect]
     Active Substance: CARBIDOPA\LEVODOPA
     Dosage: MD: 5.0ML, CD: 2.8ML/H, ED: 1.50ML DURING 16 HOURS DOSE INCREASED
     Route: 050
     Dates: start: 20240424
  5. XADAGO [Concomitant]
     Active Substance: SAFINAMIDE MESYLATE
     Indication: Product used for unknown indication
     Dosage: FORM STRENGTH: 100 MILLIGRAM?FREQUENCY TEXT: AT 08:00 HOUR
  6. RIVOTRIL [Concomitant]
     Active Substance: CLONAZEPAM
     Indication: Product used for unknown indication
     Dosage: FREQUENCY TEXT: AT 22.00
  7. STALEVO [Concomitant]
     Active Substance: CARBIDOPA\ENTACAPONE\LEVODOPA
     Indication: Product used for unknown indication
     Dosage: FORM STRENGTH: 100?FREQUENCY TEXT: AT 08:00-12:00-20:00 HOURS
  8. STALEVO [Concomitant]
     Active Substance: CARBIDOPA\ENTACAPONE\LEVODOPA
     Indication: Product used for unknown indication
     Dosage: FORM STRENGTH: 100?FREQUENCY TEXT: AT 16:00 HOUR
  9. AMANTADINE [Concomitant]
     Active Substance: AMANTADINE
     Indication: Product used for unknown indication

REACTIONS (3)
  - Muscle rigidity [Unknown]
  - Asthenia [Unknown]
  - Dementia [Unknown]
